FAERS Safety Report 8463732-4 (Version None)
Quarter: 2012Q2

REPORT INFORMATION
  Report Type: 
  Country: None (occurrence: None)
  Receive Date: 20120625
  Receipt Date: 20120618
  Transmission Date: 20120825
  Serious: Yes (Hospitalization)
  Sender: FDA-Public Use
  Company Number: US-JNJFOC-20120606709

PATIENT
  Sex: Female
  Weight: 77.11 kg

DRUGS (3)
  1. AN UNKNOWN MEDICATION [Concomitant]
     Route: 065
  2. EXTRA STRENGTH TYLENOL [Suspect]
     Route: 048
  3. EXTRA STRENGTH TYLENOL [Suspect]
     Indication: ARTHRALGIA
     Route: 048
     Dates: end: 20011119

REACTIONS (1)
  - DRUG-INDUCED LIVER INJURY [None]
